FAERS Safety Report 7333714-4 (Version None)
Quarter: 2011Q1

REPORT INFORMATION
  Report Type: 
  Country: None (occurrence: None)
  Receive Date: 20110306
  Receipt Date: 20110208
  Transmission Date: 20110831
  Serious: No
  Sender: FDA-Public Use
  Company Number: US-BAYER-2011-014872

PATIENT
  Age: 65 Year
  Sex: Female
  Weight: 56 kg

DRUGS (6)
  1. ACETAMINOPHEN [Concomitant]
  2. ATORVASTATIN CALCIUM [Concomitant]
     Dosage: UNK
  3. ALEVE (CAPLET) [Suspect]
     Dosage: UNK UNK, PRN
     Route: 048
  4. ALEVE (CAPLET) [Suspect]
     Dosage: 2 DF, QD
     Route: 048
  5. GABAPENTIN [Concomitant]
  6. ALEVE (CAPLET) [Suspect]
     Dosage: 2 DF, BID
     Route: 048
     Dates: start: 20101201

REACTIONS (2)
  - NO ADVERSE EVENT [None]
  - ALOPECIA [None]
